FAERS Safety Report 4610162-9 (Version None)
Quarter: 2005Q1

REPORT INFORMATION
  Report Type: 
  Country: None (occurrence: None)
  Receive Date: 20050314
  Receipt Date: 20050301
  Transmission Date: 20050727
  Serious: Yes (Other)
  Sender: FDA-Public Use
  Company Number: HQWYE854926JAN05

PATIENT
  Age: 50 Year
  Sex: Male

DRUGS (1)
  1. ADVIL [Suspect]
     Indication: BACK PAIN
     Dosage: 3 LIQUID-GELS, ONCE, ORAL
     Route: 048
     Dates: start: 20050122, end: 20050122

REACTIONS (1)
  - DRUG HYPERSENSITIVITY [None]
